FAERS Safety Report 4871518-2 (Version None)
Quarter: 2005Q4

REPORT INFORMATION
  Report Type: 
  Country: None (occurrence: None)
  Receive Date: 20051229
  Receipt Date: 20051212
  Transmission Date: 20060501
  Serious: Yes (Other)
  Sender: FDA-Public Use
  Company Number: US200512002029

PATIENT
  Age: 84 Year
  Sex: Female

DRUGS (14)
  1. FORTEO [Suspect]
     Indication: OSTEOPOROSIS
  2. PREDNISONE [Concomitant]
  3. AMLODIPINE BESYLATE [Concomitant]
  4. NEXIUM [Concomitant]
  5. CONJUGATED ESTROGENS [Concomitant]
  6. FLUOXETINE HYDROCHLORIDE (FLUOXETINE HYDROCHLORIDE UNKNOWN FORMULATION [Concomitant]
  7. THYROID TAB [Concomitant]
  8. REGLAN [Concomitant]
  9. TOPROL-XL [Concomitant]
  10. OXYCODONE (OXYCODONE) [Concomitant]
  11. POTASSIUM CHLORIDE (POTASSIUM CHLORIDE UNKNOWN FORMULATION) [Concomitant]
  12. WARFARIN SODIUM [Concomitant]
  13. BUMEX [Concomitant]
  14. ZOMAX (ZOMEPIRAC SODIUM) [Concomitant]

REACTIONS (8)
  - ABASIA [None]
  - ACTIVITIES OF DAILY LIVING IMPAIRED [None]
  - BREAST CANCER FEMALE [None]
  - COMPRESSION FRACTURE [None]
  - DEPRESSION [None]
  - HYPERTENSION [None]
  - HYPOTHYROIDISM [None]
  - RHEUMATOID ARTHRITIS [None]
